FAERS Safety Report 8615200 (Version 2)
Quarter: 2013Q3

REPORT INFORMATION
  Report Type: Spontaneous
  Country: US (occurrence: US)
  Receive Date: 20120614
  Receipt Date: 20130826
  Transmission Date: 20140515
  Serious: Yes (Life-Threatening, Other)
  Sender: FDA-Public Use
  Company Number: US-ROXANE LABORATORIES, INC.-2012-RO-01370RO

PATIENT
  Age: 19 Year
  Sex: Male

DRUGS (1)
  1. METHADONE [Suspect]
     Indication: ABDOMINAL PAIN

REACTIONS (2)
  - Overdose [Recovered/Resolved]
  - Hypoxic-ischaemic encephalopathy [Recovered/Resolved with Sequelae]
